FAERS Safety Report 18262733 (Version 1)
Quarter: 2020Q3

REPORT INFORMATION
  Report Type: Spontaneous
  Country: US (occurrence: US)
  Receive Date: 20200914
  Receipt Date: 20200914
  Transmission Date: 20201103
  Serious: No
  Sender: FDA-Public Use
  Company Number: US-JNJFOC-20200903812

PATIENT
  Sex: Female
  Weight: 44.49 kg

DRUGS (1)
  1. DURAGESIC [Suspect]
     Active Substance: FENTANYL
     Indication: PRODUCT USED FOR UNKNOWN INDICATION
     Dosage: NDC: 5045809405; NDC/UDI: 014167619888
     Route: 062

REACTIONS (4)
  - Product use issue [Unknown]
  - Illness [Unknown]
  - Pain [Unknown]
  - Off label use [Unknown]
